FAERS Safety Report 7451794-2 (Version None)
Quarter: 2011Q2

REPORT INFORMATION
  Report Type: 
  Country: None (occurrence: None)
  Receive Date: 20110425
  Receipt Date: 20110412
  Transmission Date: 20111010
  Serious: Yes (Death, Hospitalization)
  Sender: FDA-Public Use
  Company Number: 2011001704

PATIENT
  Age: 77 Year
  Sex: Male
  Weight: 78.2908 kg

DRUGS (19)
  1. RADIATION [Suspect]
     Indication: HEAD AND NECK CANCER
     Dosage: (DAILY X42 DAYS)
     Dates: start: 20110301, end: 20110406
  2. CRESTOR [Concomitant]
  3. NYSTATIN [Concomitant]
  4. ACTOS [Concomitant]
  5. TRIAMCINOLONE ACETONIDE [Concomitant]
  6. ASPIRIN [Concomitant]
  7. PROMETHAZINE [Concomitant]
  8. METOPROLOL TARTRATE [Concomitant]
  9. LANSOPRAZOLE [Concomitant]
  10. FLUCONAZOLE (LANSOPRAZOLE) [Concomitant]
  11. FOLIC ACID [Concomitant]
  12. PREDNISOLONE ACETATE (PREDNISOLONE ACTATE) [Concomitant]
  13. MOUTHWASH [Concomitant]
  14. ERLOTINIB HYDROCHLORIDE [Suspect]
     Indication: HEAD AND NECK CANCER
     Dosage: (150 MG,QD DAILY X42 DAYS), ORAL
     Route: 048
     Dates: start: 20110302, end: 20110406
  15. NORVASC [Concomitant]
  16. OXYCODONE HCL [Concomitant]
  17. TRANSDERM SCOP [Concomitant]
  18. PEMETREXED DISODIUM [Suspect]
     Indication: HEAD AND NECK CANCER
     Dosage: (500 MG/M2,EVERY 3 WEEKS), INTRAVEOUS
     Route: 042
     Dates: start: 20110301
  19. FENOFIBRATE [Concomitant]

REACTIONS (23)
  - HYPOTENSION [None]
  - NAUSEA [None]
  - TACHYPNOEA [None]
  - GENERAL PHYSICAL HEALTH DETERIORATION [None]
  - VOMITING [None]
  - DIARRHOEA [None]
  - COUGH [None]
  - SYNCOPE [None]
  - LACERATION [None]
  - LACTIC ACIDOSIS [None]
  - ASPIRATION [None]
  - DYSPHAGIA [None]
  - DECREASED APPETITE [None]
  - DEHYDRATION [None]
  - HAEMORRHAGE [None]
  - SEPSIS [None]
  - HAEMOGLOBIN DECREASED [None]
  - INTESTINAL ISCHAEMIA [None]
  - HYPOPHAGIA [None]
  - HAEMODYNAMIC INSTABILITY [None]
  - CHOKING [None]
  - ABDOMINAL PAIN [None]
  - HYPONATRAEMIA [None]
